FAERS Safety Report 5695557-7 (Version None)
Quarter: 2008Q2

REPORT INFORMATION
  Report Type: 
  Country: None (occurrence: None)
  Receive Date: 20080407
  Receipt Date: 20080326
  Transmission Date: 20081010
  Serious: Yes (Hospitalization)
  Sender: FDA-Public Use
  Company Number: FR-BRISTOL-MYERS SQUIBB COMPANY-14137301

PATIENT
  Age: 83 Year
  Sex: Male

DRUGS (7)
  1. ENDOXAN [Suspect]
     Indication: MANTLE CELL LYMPHOMA
     Route: 042
     Dates: start: 20080204, end: 20080204
  2. MABTHERA [Suspect]
     Indication: MANTLE CELL LYMPHOMA
     Route: 042
     Dates: start: 20080204, end: 20080204
  3. ADRIAMYCIN [Suspect]
     Indication: MANTLE CELL LYMPHOMA
     Route: 042
     Dates: start: 20080204, end: 20080204
  4. ONCOVIN [Suspect]
     Indication: MANTLE CELL LYMPHOMA
     Route: 042
     Dates: start: 20080204, end: 20080204
  5. CORTANCYL [Suspect]
     Indication: MANTLE CELL LYMPHOMA
     Route: 042
     Dates: start: 20080204, end: 20080204
  6. HYZAAR [Concomitant]
     Dosage: 1 DOSAGE FORM = 1 TABLET , LOSARTAN 50 + HYDROCHLOROTHIAZIDE 12.2
  7. SERESTA [Concomitant]
     Dosage: AT BEDTIME

REACTIONS (2)
  - LEUKOCYTOSIS [None]
  - THROMBOCYTOPENIA [None]
